FAERS Safety Report 5573580-0 (Version None)
Quarter: 2007Q4

REPORT INFORMATION
  Report Type: 
  Country: None (occurrence: None)
  Receive Date: 20071226
  Receipt Date: 20071218
  Transmission Date: 20080405
  Serious: Yes (Other)
  Sender: FDA-Public Use
  Company Number: GB-JNJFOC-20071205014

PATIENT
  Sex: Female
  Weight: 52 kg

DRUGS (9)
  1. REMICADE [Suspect]
     Indication: RHEUMATOID ARTHRITIS
     Route: 042
  2. METHOTREXATE [Concomitant]
  3. PREDNISOLONE [Concomitant]
  4. CELEBREX [Concomitant]
  5. FOLIC ACID [Concomitant]
  6. ISONIAZID [Concomitant]
  7. LANSOPRAZOLE [Concomitant]
  8. PYRIDOXINE [Concomitant]
  9. TIBOLONE [Concomitant]

REACTIONS (1)
  - CERVICAL DYSPLASIA [None]
